FAERS Safety Report 7908622-8 (Version None)
Quarter: 2011Q4

REPORT INFORMATION
  Report Type: 
  Country: None (occurrence: None)
  Receive Date: 20111111
  Receipt Date: 20111107
  Transmission Date: 20120403
  Serious: Yes (Other)
  Sender: FDA-Public Use
  Company Number: US-PFIZER INC-2011272244

PATIENT
  Sex: Male
  Weight: 72.562 kg

DRUGS (10)
  1. BACLOFEN [Concomitant]
     Indication: MUSCLE RELAXANT THERAPY
     Dosage: 5 MG, DAILY
     Route: 048
  2. OXYBUTYNIN [Concomitant]
     Indication: BLADDER DISORDER
     Dosage: 15 MG, DAILY
  3. CITALOPRAM [Concomitant]
     Dosage: 20 MG, DAILY
  4. MULTI-VITAMINS [Concomitant]
     Dosage: UNK,DAILY
  5. VFEND [Suspect]
     Indication: BRAIN ABSCESS
     Dosage: 200 MG, 2X/DAY
     Route: 048
     Dates: start: 20110418, end: 20111026
  6. MILK OF MAGNESIA TAB [Concomitant]
     Dosage: 30 ML, DAILY
  7. PANTOPRAZOLE [Concomitant]
     Dosage: 40 MG, DAILY
  8. AMBISOME [Suspect]
     Indication: FUNGAL INFECTION
     Dosage: UNK
     Dates: start: 20110401, end: 20110401
  9. DOCUSATE [Concomitant]
     Dosage: 100 MG, 2X/DAY
  10. TOPROL-XL [Concomitant]
     Dosage: 100 MG, DAILY
     Route: 048

REACTIONS (7)
  - FUNGAL TEST POSITIVE [None]
  - BLOOD CREATININE INCREASED [None]
  - LIVER FUNCTION TEST ABNORMAL [None]
  - ASPARTATE AMINOTRANSFERASE INCREASED [None]
  - VASOGENIC CEREBRAL OEDEMA [None]
  - ABSCESS [None]
  - C-REACTIVE PROTEIN DECREASED [None]
